FAERS Safety Report 16669680 (Version 2)
Quarter: 2019Q3

REPORT INFORMATION
  Report Type: Report from Study
  Country: CN (occurrence: CN)
  Receive Date: 20190805
  Receipt Date: 20190815
  Transmission Date: 20191004
  Serious: Yes (Other)
  Sender: FDA-Public Use
  Company Number: CN-ASTRAZENECA-2019SF10568

PATIENT
  Age: 37 Year
  Sex: Male
  Weight: 88 kg

DRUGS (7)
  1. ACARBOSE. [Concomitant]
     Active Substance: ACARBOSE
  2. INSULIN [Concomitant]
     Active Substance: INSULIN NOS
  3. BYETTA [Suspect]
     Active Substance: EXENATIDE
     Indication: DIABETES MELLITUS
     Dosage: 10 UG, ONE INJECTION IN THE MORNING
     Route: 058
  4. METFORMIN [Concomitant]
     Active Substance: METFORMIN HYDROCHLORIDE
  5. INSULIN DETEMIR [Concomitant]
     Active Substance: INSULIN DETEMIR
  6. BYETTA [Suspect]
     Active Substance: EXENATIDE
     Indication: DIABETES MELLITUS
     Route: 058
     Dates: start: 20190326
  7. BYETTA [Suspect]
     Active Substance: EXENATIDE
     Indication: DIABETES MELLITUS
     Dosage: 10 UG TWO TIMES A DAY, ONE INJECTION IN THE MORNING AND ONE INJECTION IN THE EVENING
     Route: 058

REACTIONS (8)
  - Decreased appetite [Unknown]
  - Obstruction gastric [Recovering/Resolving]
  - Dyspepsia [Unknown]
  - Vomiting [Unknown]
  - Nausea [Unknown]
  - Pain in extremity [Recovering/Resolving]
  - Hyperchlorhydria [Recovering/Resolving]
  - Abdominal discomfort [Recovering/Resolving]
